FAERS Safety Report 10205264 (Version 3)
Quarter: 2015Q3

REPORT INFORMATION
  Report Type: Spontaneous
  Country: US (occurrence: US)
  Receive Date: 20140529
  Receipt Date: 20150817
  Transmission Date: 20151125
  Serious: No
  Sender: FDA-Public Use
  Company Number: US-GILEAD-2014-0103817

PATIENT
  Age: 59 Year
  Sex: Female

DRUGS (6)
  1. KLOR-CON [Concomitant]
     Active Substance: POTASSIUM CHLORIDE
  2. TORSEMIDE. [Concomitant]
     Active Substance: TORSEMIDE
  3. LETAIRIS [Suspect]
     Active Substance: AMBRISENTAN
     Indication: PORTOPULMONARY HYPERTENSION
     Dosage: 5 MG, QD
     Route: 065
     Dates: start: 20140509, end: 20140521
  4. BUSPIRONE [Concomitant]
     Active Substance: BUSPIRONE HYDROCHLORIDE
  5. CALTRATE [Concomitant]
     Active Substance: CALCIUM CARBONATE
  6. DEMADEX [Concomitant]
     Active Substance: TORSEMIDE

REACTIONS (3)
  - Oedema peripheral [Recovering/Resolving]
  - Feeling jittery [Unknown]
  - Insomnia [Unknown]

NARRATIVE: CASE EVENT DATE: 20140509
